FAERS Safety Report 9163587 (Version 1)
Quarter: 2013Q1

REPORT INFORMATION
  Report Type: Spontaneous
  Country: US (occurrence: US)
  Receive Date: 20130314
  Receipt Date: 20130314
  Transmission Date: 20140127
  Serious: No
  Sender: FDA-Public Use
  Company Number: US-PFIZER INC-2013084181

PATIENT
  Age: 67 Year
  Sex: Female
  Weight: 59.86 kg

DRUGS (3)
  1. PREMARIN VAGINAL CREAM [Suspect]
     Indication: VULVOVAGINAL DRYNESS
     Dosage: UNK, 2X/WEEK
     Route: 067
     Dates: start: 2010
  2. PREMARIN VAGINAL CREAM [Suspect]
     Indication: URINARY TRACT INFECTION
     Dosage: UNK
     Route: 067
  3. CRESTOR [Concomitant]
     Dosage: UNK

REACTIONS (1)
  - Therapeutic response unexpected [Unknown]
